FAERS Safety Report 11219753 (Version 3)
Quarter: 2016Q1

REPORT INFORMATION
  Report Type: Spontaneous
  Country: US (occurrence: US)
  Receive Date: 20150625
  Receipt Date: 20160122
  Transmission Date: 20160525
  Serious: Yes (Other)
  Sender: FDA-Public Use
  Company Number: US-GLAXOSMITHKLINE-US2015086493

PATIENT
  Age: 69 Year
  Sex: Female

DRUGS (9)
  1. ALBUTEROL INHALER [Concomitant]
     Active Substance: ALBUTEROL
  2. ANORO ELLIPTA [Suspect]
     Active Substance: UMECLIDINIUM BROMIDE\VILANTEROL TRIFENATATE
     Indication: CHRONIC OBSTRUCTIVE PULMONARY DISEASE
     Dosage: 1 PUFF(S), QD
     Route: 055
     Dates: start: 20150606
  3. IBUPROFEN. [Concomitant]
     Active Substance: IBUPROFEN
  4. ANORO ELLIPTA [Suspect]
     Active Substance: UMECLIDINIUM BROMIDE\VILANTEROL TRIFENATATE
     Indication: EMPHYSEMA
  5. FLUTICASONE PROPIONATE. [Concomitant]
     Active Substance: FLUTICASONE PROPIONATE
  6. OSTEO BIFLEX [Concomitant]
     Active Substance: CHONDROITIN SULFATE A\GLUCOSAMINE
  7. TYLENOL [Concomitant]
     Active Substance: ACETAMINOPHEN
  8. SUBLINGUAL B12 [Concomitant]
  9. EMERGEN-C [Concomitant]
     Active Substance: VITAMINS

REACTIONS (14)
  - Muscle spasms [Not Recovered/Not Resolved]
  - Dyspnoea [Recovering/Resolving]
  - Chest pain [Not Recovered/Not Resolved]
  - Eye pain [Not Recovered/Not Resolved]
  - Back pain [Not Recovered/Not Resolved]
  - Neck pain [Not Recovered/Not Resolved]
  - Activities of daily living impaired [Not Recovered/Not Resolved]
  - Pain in extremity [Not Recovered/Not Resolved]
  - Ocular discomfort [Not Recovered/Not Resolved]
  - Sinus disorder [Not Recovered/Not Resolved]
  - Adverse drug reaction [Unknown]
  - Ill-defined disorder [Unknown]
  - Myalgia [Not Recovered/Not Resolved]
  - Oxygen supplementation [Unknown]

NARRATIVE: CASE EVENT DATE: 20150608
